FAERS Safety Report 7225854-5 (Version None)
Quarter: 2011Q1

REPORT INFORMATION
  Report Type: 
  Country: None (occurrence: None)
  Receive Date: 20110113
  Receipt Date: 20110110
  Transmission Date: 20110831
  Serious: Yes (Death, Hospitalization)
  Sender: FDA-Public Use
  Company Number: US-ASTRAZENECA-2011SE01455

PATIENT
  Sex: Female

DRUGS (7)
  1. LASIX [Concomitant]
  2. ALBUTEROL [Concomitant]
  3. SYNTHROID [Concomitant]
  4. SYMBICORT [Suspect]
     Indication: CHRONIC OBSTRUCTIVE PULMONARY DISEASE
     Dosage: UNKOWN
     Route: 055
  5. COREG [Concomitant]
  6. PROPRANOLOL [Concomitant]
  7. PREVACID [Concomitant]

REACTIONS (4)
  - CARDIAC FAILURE [None]
  - HIP FRACTURE [None]
  - MYOCARDIAL INFARCTION [None]
  - FALL [None]
